FAERS Safety Report 8831533 (Version 3)
Quarter: 2013Q1

REPORT INFORMATION
  Report Type: Spontaneous
  Country: JP (occurrence: JP)
  Receive Date: 20121008
  Receipt Date: 20130204
  Transmission Date: 20140127
  Serious: Yes (Hospitalization)
  Sender: FDA-Public Use
  Company Number: JP-GLAXOSMITHKLINE-B0835734A

PATIENT
  Age: 78 Year
  Sex: Male
  Weight: 42 kg

DRUGS (13)
  1. VALTREX [Suspect]
     Indication: HERPES ZOSTER
     Dosage: 500MG PER DAY
     Route: 048
     Dates: start: 20120925, end: 20121001
  2. BAYASPIRIN [Concomitant]
     Route: 048
  3. DIOVAN [Concomitant]
     Route: 048
  4. CEREKINON [Concomitant]
     Route: 048
  5. MUCOSTA [Concomitant]
     Route: 048
  6. PLETAAL [Concomitant]
     Route: 048
  7. URIEF [Concomitant]
     Route: 048
  8. ALLEGRA [Concomitant]
     Route: 048
  9. TAKEPRON [Concomitant]
     Route: 065
  10. MUCOSOLVAN [Concomitant]
     Route: 048
  11. ATELEC [Concomitant]
     Route: 048
  12. BISOLVON [Concomitant]
     Route: 065
  13. URSO [Concomitant]
     Route: 048

REACTIONS (8)
  - Encephalopathy [Recovered/Resolved]
  - Depressed level of consciousness [Recovered/Resolved]
  - Altered state of consciousness [Recovered/Resolved]
  - Dysarthria [Recovered/Resolved]
  - Screaming [Recovered/Resolved]
  - Logorrhoea [Unknown]
  - Dysphagia [Unknown]
  - Asthenia [Unknown]
